FAERS Safety Report 6309392-X (Version None)
Quarter: 2009Q3

REPORT INFORMATION
  Report Type: 
  Country: None (occurrence: None)
  Receive Date: 20090814
  Receipt Date: 20090806
  Transmission Date: 20100115
  Serious: Yes (Hospitalization)
  Sender: FDA-Public Use
  Company Number: US-ROCHE-648549

PATIENT
  Age: 80 Year
  Sex: Female

DRUGS (9)
  1. BONIVA [Suspect]
     Indication: OSTEOPOROSIS
     Route: 048
     Dates: start: 20090301
  2. ZOCOR [Concomitant]
  3. ROCALTROL [Concomitant]
  4. PAXIL [Concomitant]
  5. SYNTHROID [Concomitant]
  6. MULTI-VITAMIN [Concomitant]
  7. NORVASC [Concomitant]
  8. AVALIDE [Concomitant]
  9. CALCIUM [Concomitant]

REACTIONS (7)
  - ABDOMINAL DISCOMFORT [None]
  - BACK PAIN [None]
  - DRUG DOSE OMISSION [None]
  - GASTRIC HAEMORRHAGE [None]
  - GINGIVAL PAIN [None]
  - TOOTH EXTRACTION [None]
  - TOOTHACHE [None]
